FAERS Safety Report 6030459-8 (Version None)
Quarter: 2009Q1

REPORT INFORMATION
  Report Type: 
  Country: None (occurrence: None)
  Receive Date: 20090105
  Receipt Date: 20090105
  Transmission Date: 20090719
  Serious: Yes (Hospitalization, Other)
  Sender: FDA-Public Use
  Company Number: None

PATIENT
  Age: 44 Year
  Sex: Male
  Weight: 81.6475 kg

DRUGS (1)
  1. NALTREXONE HYDROCHLORIDE [Suspect]
     Dosage: 2 TABLETS QD PO
     Route: 048
     Dates: start: 20080124, end: 20080130

REACTIONS (2)
  - FALSE POSITIVE LABORATORY RESULT [None]
  - PRODUCT QUALITY ISSUE [None]
